FAERS Safety Report 16500147 (Version 1)
Quarter: 2019Q3

REPORT INFORMATION
  Report Type: Spontaneous
  Country: US (occurrence: US)
  Receive Date: 20190628
  Receipt Date: 20190628
  Transmission Date: 20191004
  Serious: Yes (Hospitalization)
  Sender: FDA-Public Use
  Company Number: None

PATIENT
  Age: 26 Year
  Sex: Female
  Weight: 67.5 kg

DRUGS (2)
  1. XULANE [Suspect]
     Active Substance: ETHINYL ESTRADIOL\NORELGESTROMIN
     Indication: OVARIAN CYST
     Dosage: ?          QUANTITY:1 PATCH(ES);OTHER FREQUENCY:ONCE WEEKLY;?
     Route: 062
     Dates: start: 20190616, end: 20190621
  2. XULANE [Suspect]
     Active Substance: ETHINYL ESTRADIOL\NORELGESTROMIN
     Indication: CONTRACEPTION
     Dosage: ?          QUANTITY:1 PATCH(ES);OTHER FREQUENCY:ONCE WEEKLY;?
     Route: 062
     Dates: start: 20190616, end: 20190621

REACTIONS (4)
  - Seizure [None]
  - Muscle spasms [None]
  - Rash erythematous [None]
  - Application site rash [None]

NARRATIVE: CASE EVENT DATE: 20190620
